FAERS Safety Report 13550673 (Version 3)
Quarter: 2017Q2

REPORT INFORMATION
  Report Type: Spontaneous
  Country: CH (occurrence: CH)
  Receive Date: 20170516
  Receipt Date: 20170620
  Transmission Date: 20170830
  Serious: Yes (Other)
  Sender: FDA-Public Use
  Company Number: CH-LPDUSPRD-20170626

PATIENT
  Age: 38 Year
  Sex: Male

DRUGS (1)
  1. FERINJECT [Suspect]
     Active Substance: FERRIC CARBOXYMALTOSE
     Dosage: UNKNOWN DOSE
     Route: 040

REACTIONS (3)
  - Vitamin D deficiency [Unknown]
  - Hypophosphataemia [Unknown]
  - Fibroblast growth factor 23 increased [Unknown]
